FAERS Safety Report 10024317 (Version 1)
Quarter: 2014Q1

REPORT INFORMATION
  Report Type: Spontaneous
  Country: US (occurrence: None)
  Receive Date: 20140318
  Receipt Date: 20140318
  Transmission Date: 20141002
  Serious: Yes (Life-Threatening, Hospitalization)
  Sender: FDA-Public Use
  Company Number: None

PATIENT
  Age: 67 Year
  Sex: Female
  Weight: 129.7 kg

DRUGS (1)
  1. PRADAXA [Suspect]
     Indication: ATRIAL FIBRILLATION
     Route: 048

REACTIONS (11)
  - Faeces discoloured [None]
  - Unresponsive to stimuli [None]
  - Hypotension [None]
  - Renal failure acute [None]
  - Sepsis [None]
  - Headache [None]
  - Thrombocytopenia [None]
  - International normalised ratio increased [None]
  - Bacteraemia [None]
  - Metabolic encephalopathy [None]
  - Gastrointestinal ulcer [None]
